FAERS Safety Report 25671709 (Version 2)
Quarter: 2025Q3

REPORT INFORMATION
  Report Type: Spontaneous
  Country: EU (occurrence: EU)
  Receive Date: 20250812
  Receipt Date: 20250822
  Transmission Date: 20251020
  Serious: Yes (Life-Threatening, Hospitalization)
  Sender: MYLAN
  Company Number: None

PATIENT
  Age: 41 Year
  Sex: Female
  Weight: 66 kg

DRUGS (24)
  1. DEXAMETHASONE [Suspect]
     Active Substance: DEXAMETHASONE
     Indication: Anaesthesia
     Dates: start: 20241129, end: 20241129
  2. DEXAMETHASONE [Suspect]
     Active Substance: DEXAMETHASONE
     Route: 042
     Dates: start: 20241129, end: 20241129
  3. DEXAMETHASONE [Suspect]
     Active Substance: DEXAMETHASONE
     Route: 042
     Dates: start: 20241129, end: 20241129
  4. DEXAMETHASONE [Suspect]
     Active Substance: DEXAMETHASONE
     Dates: start: 20241129, end: 20241129
  5. PROPOFOL [Suspect]
     Active Substance: PROPOFOL
     Indication: Anaesthesia
     Dates: start: 20241129, end: 20241129
  6. PROPOFOL [Suspect]
     Active Substance: PROPOFOL
     Route: 042
     Dates: start: 20241129, end: 20241129
  7. PROPOFOL [Suspect]
     Active Substance: PROPOFOL
     Route: 042
     Dates: start: 20241129, end: 20241129
  8. PROPOFOL [Suspect]
     Active Substance: PROPOFOL
     Dates: start: 20241129, end: 20241129
  9. SUFENTANIL [Suspect]
     Active Substance: SUFENTANIL
     Indication: Anaesthesia
     Dates: start: 20241129, end: 20241129
  10. SUFENTANIL [Suspect]
     Active Substance: SUFENTANIL
     Route: 042
     Dates: start: 20241129, end: 20241129
  11. SUFENTANIL [Suspect]
     Active Substance: SUFENTANIL
     Route: 042
     Dates: start: 20241129, end: 20241129
  12. SUFENTANIL [Suspect]
     Active Substance: SUFENTANIL
     Dates: start: 20241129, end: 20241129
  13. ROCURONIUM [Suspect]
     Active Substance: ROCURONIUM BROMIDE
     Indication: Anaesthesia
     Dates: start: 20241129, end: 20241129
  14. ROCURONIUM [Suspect]
     Active Substance: ROCURONIUM BROMIDE
     Route: 042
     Dates: start: 20241129, end: 20241129
  15. ROCURONIUM [Suspect]
     Active Substance: ROCURONIUM BROMIDE
     Route: 042
     Dates: start: 20241129, end: 20241129
  16. ROCURONIUM [Suspect]
     Active Substance: ROCURONIUM BROMIDE
     Dates: start: 20241129, end: 20241129
  17. ESKETAMINE [Suspect]
     Active Substance: ESKETAMINE
     Indication: Anaesthesia
     Dates: start: 20241129, end: 20241129
  18. ESKETAMINE [Suspect]
     Active Substance: ESKETAMINE
     Route: 042
     Dates: start: 20241129, end: 20241129
  19. ESKETAMINE [Suspect]
     Active Substance: ESKETAMINE
     Route: 042
     Dates: start: 20241129, end: 20241129
  20. ESKETAMINE [Suspect]
     Active Substance: ESKETAMINE
     Dates: start: 20241129, end: 20241129
  21. VISIPAQUE [Suspect]
     Active Substance: IODIXANOL
     Indication: Scan
     Dosage: 30 MILLILITER, QD (30 ML/D)
     Dates: start: 20241129, end: 20241129
  22. VISIPAQUE [Suspect]
     Active Substance: IODIXANOL
     Dosage: 30 MILLILITER, QD (30 ML/D)
     Route: 042
     Dates: start: 20241129, end: 20241129
  23. VISIPAQUE [Suspect]
     Active Substance: IODIXANOL
     Dosage: 30 MILLILITER, QD (30 ML/D)
     Route: 042
     Dates: start: 20241129, end: 20241129
  24. VISIPAQUE [Suspect]
     Active Substance: IODIXANOL
     Dosage: 30 MILLILITER, QD (30 ML/D)
     Dates: start: 20241129, end: 20241129

REACTIONS (1)
  - Anaphylactic shock [Recovered/Resolved]

NARRATIVE: CASE EVENT DATE: 20241129
